FAERS Safety Report 8426477-2 (Version None)
Quarter: 2012Q2

REPORT INFORMATION
  Report Type: 
  Country: None (occurrence: None)
  Receive Date: 20120323
  Receipt Date: 20110803
  Transmission Date: 20120825
  Serious: Yes (Other)
  Sender: FDA-Public Use
  Company Number: 163-21880-11080522

PATIENT
  Age: 79 Year
  Sex: Female

DRUGS (9)
  1. VITAMIN E-200 (TOCOPHEROL) [Concomitant]
  2. REVLIMID [Suspect]
     Indication: MULTIPLE MYELOMA
     Dosage: 25 MG, X21, PO
     Route: 048
     Dates: start: 20110609
  3. FOSAMAX [Concomitant]
  4. ZOCOR [Concomitant]
  5. MULTI MEGA MINERALS (MINERALS NOS) [Concomitant]
  6. ASCORBIC ACID [Concomitant]
  7. LISINOPRIL [Concomitant]
  8. FISH OIL (FISH OIL) [Concomitant]
  9. AMBIEN [Concomitant]

REACTIONS (1)
  - PLATELET COUNT DECREASED [None]
